FAERS Safety Report 9247794 (Version 1)
Quarter: 2013Q1

REPORT INFORMATION
  Report Type: Spontaneous
  Country: US (occurrence: None)
  Receive Date: 20130305
  Receipt Date: 20130305
  Transmission Date: 20140127
  Serious: Yes (Other)
  Sender: FDA-Public Use
  Company Number: 163-21880-12051440

PATIENT
  Age: 88 Year
  Sex: Male

DRUGS (3)
  1. REVLIMID [Suspect]
     Indication: MYELOFIBROSIS
     Route: 048
     Dates: start: 201002
  2. ARANESP (DARBEPOETIN ALFA) [Concomitant]
  3. ASPIRIN [Concomitant]

REACTIONS (4)
  - Platelet count decreased [None]
  - Anaemia [None]
  - Neutrophil count decreased [None]
  - Leukopenia [None]
